FAERS Safety Report 4954105-7 (Version None)
Quarter: 2006Q1

REPORT INFORMATION
  Report Type: 
  Country: None (occurrence: None)
  Receive Date: 20060327
  Receipt Date: 20060314
  Transmission Date: 20060701
  Serious: Yes (Other)
  Sender: FDA-Public Use
  Company Number: ES-GLAXOSMITHKLINE-B0416685A

PATIENT
  Age: 59 Year
  Sex: Male

DRUGS (12)
  1. FONDAPARINUX [Suspect]
     Dosage: 2.5MG PER DAY
     Route: 058
     Dates: start: 20050526, end: 20050527
  2. ASPIRIN [Concomitant]
  3. CLOPIDOGREL [Concomitant]
  4. OMEPRAZOLE [Concomitant]
  5. SIMVASTATIN [Concomitant]
  6. LORAZEPAM [Concomitant]
  7. ABCIXIMAB [Concomitant]
  8. IOPAMIDOL [Concomitant]
     Dates: start: 20050526
  9. MORPHINE [Concomitant]
  10. ACETAMINOPHEN [Concomitant]
  11. PRIMPERAN TAB [Concomitant]
  12. NITROGLYCERIN [Concomitant]

REACTIONS (1)
  - PHARYNGEAL OEDEMA [None]
